FAERS Safety Report 8220080-5 (Version None)
Quarter: 2012Q1

REPORT INFORMATION
  Report Type: 
  Country: None (occurrence: None)
  Receive Date: 20120316
  Receipt Date: 20120306
  Transmission Date: 20120608
  Serious: Yes (Disabling)
  Sender: FDA-Public Use
  Company Number: 2012SP012683

PATIENT
  Age: 55 Year
  Sex: Female

DRUGS (4)
  1. RIBAVIRIN [Suspect]
     Indication: HEPATITIS C
  2. AMBIEN [Concomitant]
  3. VICTRELIS [Suspect]
     Indication: HEPATITIS C
     Dosage: 800 MG;TID;PO
     Route: 048
     Dates: start: 20110728, end: 20120222
  4. PEG-INTRON [Suspect]
     Indication: HEPATITIS C

REACTIONS (2)
  - SKIN BURNING SENSATION [None]
  - PAIN OF SKIN [None]
